FAERS Safety Report 9061316 (Version 2)
Quarter: 2013Q1

REPORT INFORMATION
  Report Type: Spontaneous
  Country: US (occurrence: US)
  Receive Date: 20130204
  Receipt Date: 20130306
  Transmission Date: 20140127
  Serious: Yes (Other)
  Sender: FDA-Public Use
  Company Number: US-ASTELLAS-2013US001097

PATIENT
  Age: 56 None
  Sex: Female
  Weight: 88 kg

DRUGS (1)
  1. PROGRAF [Suspect]
     Indication: RENAL TRANSPLANT
     Dosage: 3 MG, BID
     Route: 048
     Dates: start: 20080524

REACTIONS (2)
  - Back disorder [Recovered/Resolved]
  - Musculoskeletal disorder [Recovered/Resolved]
